FAERS Safety Report 7065165-4 (Version None)
Quarter: 2010Q4

REPORT INFORMATION
  Report Type: 
  Country: None (occurrence: None)
  Receive Date: 20101027
  Receipt Date: 19931110
  Transmission Date: 20110411
  Serious: Yes (Death, Hospitalization)
  Sender: FDA-Public Use
  Company Number: DE-ROCHE-930319912001

PATIENT
  Sex: Male
  Weight: 76 kg

DRUGS (3)
  1. ROFERON-A [Suspect]
     Route: 058
  2. FLUOROURACIL [Concomitant]
     Route: 042
  3. FOLINIC ACID [Concomitant]
     Route: 042

REACTIONS (3)
  - COLON CANCER METASTATIC [None]
  - DYSPNOEA [None]
  - HYPOXIA [None]
